FAERS Safety Report 7895086-6 (Version None)
Quarter: 2011Q4

REPORT INFORMATION
  Report Type: 
  Country: None (occurrence: None)
  Receive Date: 20111102
  Receipt Date: 20111020
  Transmission Date: 20120403
  Serious: Yes (Hospitalization, Other)
  Sender: FDA-Public Use
  Company Number: 2011P1009569

PATIENT
  Age: 61 Year
  Sex: Male
  Weight: 68.0396 kg

DRUGS (6)
  1. DOXEPIN HYDROCHLORIDE [Suspect]
     Dates: end: 20110901
  2. FENTANYL [Suspect]
     Indication: NEURALGIA
     Dosage: 1 PATCH; Q72H; TDER
     Route: 062
     Dates: start: 20070101
  3. FENTANYL CITRATE [Suspect]
     Indication: NEURALGIA
     Dosage: 1 PATCH; Q72H; TDER
     Route: 062
     Dates: start: 20070101
  4. METHADONE HCL [Concomitant]
  5. KLONOPIN [Concomitant]
  6. ATIVAN [Concomitant]

REACTIONS (4)
  - WEIGHT DECREASED [None]
  - CARDIAC ARREST [None]
  - SUICIDAL BEHAVIOUR [None]
  - VENTRICULAR TACHYCARDIA [None]
